FAERS Safety Report 5886083-0 (Version None)
Quarter: 2008Q3

REPORT INFORMATION
  Report Type: 
  Country: None (occurrence: None)
  Receive Date: 20080917
  Receipt Date: 20080902
  Transmission Date: 20090109
  Serious: Yes (Life-Threatening, Hospitalization, Other)
  Sender: FDA-Public Use
  Company Number: US-AMGEN-02050638

PATIENT
  Age: 73 Year
  Sex: Male

DRUGS (10)
  1. ETANERCEPT [Suspect]
     Indication: WEGENER'S GRANULOMATOSIS
     Route: 058
     Dates: end: 20020501
  2. ETANERCEPT [Suspect]
  3. CYCLOPHOSPHAMIDE [Concomitant]
  4. AZATHIOPRINE [Concomitant]
  5. CALCIUM [Concomitant]
  6. TRIMETHOPRIM + SULFAMETHOXAZOLE [Concomitant]
  7. FOSAMAX [Concomitant]
  8. PREDNISONE TAB [Concomitant]
  9. XANAX [Concomitant]
  10. CYTOXAN [Concomitant]

REACTIONS (2)
  - CONDITION AGGRAVATED [None]
  - LIPOSARCOMA [None]
